FAERS Safety Report 9482159 (Version 1)
Quarter: 2013Q3

REPORT INFORMATION
  Report Type: Spontaneous
  Country: US (occurrence: US)
  Receive Date: 20130828
  Receipt Date: 20130828
  Transmission Date: 20140515
  Serious: No
  Sender: FDA-Public Use
  Company Number: US-B.I. PHARMACEUTICALS,INC./RIDGEFIELD-2013-BI-26132BP

PATIENT
  Age: 62 Year
  Sex: Female

DRUGS (6)
  1. SPIRIVA [Suspect]
     Indication: ASTHMA
     Dosage: 18 MCG
     Route: 055
     Dates: start: 20130718
  2. LOSARTAN [Concomitant]
     Route: 048
  3. METOPROLOL [Concomitant]
     Route: 048
  4. PROAIR [Concomitant]
     Route: 048
  5. SYNTHOID [Concomitant]
     Route: 048
  6. SINGULAIR [Concomitant]
     Route: 048

REACTIONS (2)
  - Urticaria [Recovered/Resolved]
  - Off label use [Not Recovered/Not Resolved]
